FAERS Safety Report 8788657 (Version 3)
Quarter: 2013Q3

REPORT INFORMATION
  Report Type: Report from Study
  Country: US (occurrence: US)
  Receive Date: 20120916
  Receipt Date: 20130820
  Transmission Date: 20140515
  Serious: No
  Sender: FDA-Public Use
  Company Number: PHEH2012US017869

PATIENT
  Age: 49 Year
  Sex: Female
  Weight: 60.63 kg

DRUGS (4)
  1. GILENYA [Suspect]
     Indication: MULTIPLE SCLEROSIS
     Dosage: 0.5 UNK, QD
     Route: 048
     Dates: start: 20110509, end: 20130815
  2. CITALOPRAM HBR [Concomitant]
  3. PRAVASTATIN SODIUM [Concomitant]
  4. VITAMIN D2 [Concomitant]

REACTIONS (2)
  - Contusion [Recovered/Resolved]
  - Fall [Recovered/Resolved]
